FAERS Safety Report 4282558-9 (Version None)
Quarter: 2004Q1

REPORT INFORMATION
  Report Type: 
  Country: None (occurrence: None)
  Receive Date: 20040129
  Receipt Date: 20040120
  Transmission Date: 20041129
  Serious: No
  Sender: FDA-Public Use
  Company Number: 04H-163-0247938-00

PATIENT
  Sex: 0

DRUGS (6)
  1. HEPARIN SODIUM [Suspect]
     Indication: ANTICOAGULANT THERAPY
     Dosage: 65 UG/KG; INTRAVENOUS BOLUS; PRIOR TO PCI
     Route: 040
  2. ABCIXIMAB [Suspect]
     Indication: ANTICOAGULANT THERAPY
     Dosage: 0.25 MG/KG, INTRAVNEOUS BOLUS; PRIOR TO PCI
  3. ABCIXIMAB [Suspect]
     Indication: ANTICOAGULANT THERAPY
     Dosage: 0.125 UG/KG/MIN, INTRAVENOUS
     Route: 042
  4. EPTIFIBATIDE [Suspect]
     Indication: ANTICOAGULANT THERAPY
     Dosage: 180 UG/KG, TWICE, INTRAVENOUS BOLUS; PRIOR TO PCI
     Route: 040
  5. EPTIFIBATIDE [Suspect]
     Indication: ANTICOAGULANT THERAPY
     Dosage: 2 MCG/KG/MIN, INTRAVENOUS
     Route: 042
  6. ACETYLSALICYLIC ACID [Concomitant]

REACTIONS (1)
  - MYOCARDIAL INFARCTION [None]
